FAERS Safety Report 6408806-4 (Version None)
Quarter: 2009Q4

REPORT INFORMATION
  Report Type: 
  Country: None (occurrence: None)
  Receive Date: 20091021
  Receipt Date: 20091016
  Transmission Date: 20100525
  Serious: Yes (Other)
  Sender: FDA-Public Use
  Company Number: B0597370A

PATIENT
  Sex: Male

DRUGS (2)
  1. AVAMYS [Suspect]
     Dosage: 27.5MCG PER DAY
     Route: 045
     Dates: start: 20090708, end: 20090708
  2. AERIUS [Concomitant]
     Dosage: 5MG PER DAY
     Route: 048
     Dates: start: 20090701, end: 20090801

REACTIONS (2)
  - ANGIOEDEMA [None]
  - EYELID OEDEMA [None]
